FAERS Safety Report 23034490 (Version 1)
Quarter: 2023Q4

REPORT INFORMATION
  Report Type: Spontaneous
  Country: US (occurrence: US)
  Receive Date: 20231005
  Receipt Date: 20231005
  Transmission Date: 20240110
  Serious: Yes (Other)
  Sender: FDA-Public Use
  Company Number: US-AMGEN-USASP2023174589

PATIENT
  Age: 68 Year
  Sex: Female

DRUGS (1)
  1. PROLIA [Suspect]
     Active Substance: DENOSUMAB
     Indication: Osteoporosis
     Dosage: 50 MILLIGRAM, Q6MO
     Route: 065
     Dates: start: 2013

REACTIONS (3)
  - Breast cancer [Unknown]
  - Bone loss [Unknown]
  - Off label use [Unknown]

NARRATIVE: CASE EVENT DATE: 20130101
